FAERS Safety Report 13012032 (Version 2)
Quarter: 2016Q4

REPORT INFORMATION
  Report Type: Spontaneous
  Country: DE (occurrence: DE)
  Receive Date: 20161209
  Receipt Date: 20161223
  Transmission Date: 20170207
  Serious: Yes (Hospitalization, Other)
  Sender: FDA-Public Use
  Company Number: DE-UCBSA-2016046433

PATIENT
  Age: 36 Year
  Sex: Male
  Weight: 70 kg

DRUGS (3)
  1. VIMPAT [Suspect]
     Active Substance: LACOSAMIDE
     Indication: PRODUCT USED FOR UNKNOWN INDICATION
     Dosage: UNK
  2. ALCOHOL. [Suspect]
     Active Substance: ALCOHOL
     Indication: PRODUCT USED FOR UNKNOWN INDICATION
     Dosage: UNK
     Route: 048
     Dates: start: 20161202, end: 20161202
  3. VIMPAT [Suspect]
     Active Substance: LACOSAMIDE
     Dosage: 10 TABL. AT LEAST
     Dates: start: 20161202, end: 20161202

REACTIONS (4)
  - Drug abuse [Unknown]
  - Intentional overdose [Unknown]
  - Suicidal ideation [Recovered/Resolved]
  - Alcohol abuse [Unknown]

NARRATIVE: CASE EVENT DATE: 20161202
